FAERS Safety Report 20430244 (Version 1)
Quarter: 2022Q1

REPORT INFORMATION
  Report Type: Report from Study
  Country: FR (occurrence: FR)
  Receive Date: 20220204
  Receipt Date: 20220204
  Transmission Date: 20220423
  Serious: Yes (Hospitalization, Other)
  Sender: FDA-Public Use
  Company Number: FR-SERVIER-S20004296

PATIENT

DRUGS (8)
  1. PEGASPARGASE [Suspect]
     Active Substance: PEGASPARGASE
     Indication: Acute lymphocytic leukaemia
     Dosage: 1125 MG  D15
     Dates: start: 20191122, end: 20191122
  2. CYCLOPHOSPHAMIDE [Suspect]
     Active Substance: CYCLOPHOSPHAMIDE
     Indication: Acute lymphocytic leukaemia
     Dosage: 920 MG, ON D1, D29
     Route: 042
     Dates: start: 20191108, end: 20191206
  3. MERCAPTOPURINE [Suspect]
     Active Substance: MERCAPTOPURINE
     Indication: Acute lymphocytic leukaemia
     Dosage: 50 MG FROM D1 TO D14, FROM D29 TO D42
     Route: 048
     Dates: start: 20191108, end: 20191206
  4. VINCRISTINE [Suspect]
     Active Substance: VINCRISTINE
     Indication: Acute lymphocytic leukaemia
     Dosage: 1.3 MG, ON D15
     Route: 042
     Dates: start: 20191122, end: 20191227
  5. CYTARABINE [Suspect]
     Active Substance: CYTARABINE
     Indication: Acute lymphocytic leukaemia
     Dosage: 30 MG, ON D3, D31
     Route: 037
     Dates: start: 20191110, end: 20191208
  6. CYTARABINE [Suspect]
     Active Substance: CYTARABINE
     Dosage: 65 MG, D3 TO D6, D10 TO D13, FROM D31 TO D34
     Route: 042
     Dates: start: 20191112, end: 20191218
  7. METHOTREXATE [Suspect]
     Active Substance: METHOTREXATE
     Indication: Acute lymphocytic leukaemia
     Dosage: 12 MG ON D3, D31
     Route: 037
     Dates: start: 20191112, end: 20191208
  8. HYDROCORTISONE [Suspect]
     Active Substance: HYDROCORTISONE
     Indication: Acute lymphocytic leukaemia
     Dosage: 15MG ON D3, D31
     Route: 037
     Dates: start: 20191112, end: 20191208

REACTIONS (2)
  - Febrile bone marrow aplasia [Recovered/Resolved]
  - Hypersensitivity [Recovered/Resolved]

NARRATIVE: CASE EVENT DATE: 20191122
